FAERS Safety Report 5674847-8 (Version None)
Quarter: 2008Q1

REPORT INFORMATION
  Report Type: 
  Country: None (occurrence: None)
  Receive Date: 20080319
  Receipt Date: 20080319
  Transmission Date: 20080703
  Serious: No
  Sender: FDA-Public Use
  Company Number: None

PATIENT
  Age: 50 Year
  Sex: Female
  Weight: 63.5036 kg

DRUGS (1)
  1. XYZAL [Suspect]
     Indication: ALLERGIC SINUSITIS
     Dosage: 1 TABLET AT BEDTIME PO
     Route: 048
     Dates: start: 20080317, end: 20080318

REACTIONS (4)
  - DRUG INEFFECTIVE [None]
  - OCULAR ICTERUS [None]
  - PHARMACEUTICAL PRODUCT COMPLAINT [None]
  - YELLOW SKIN [None]
